FAERS Safety Report 6558508-9 (Version None)
Quarter: 2010Q1

REPORT INFORMATION
  Report Type: 
  Country: None (occurrence: None)
  Receive Date: 20100129
  Receipt Date: 20100121
  Transmission Date: 20100710
  Serious: Yes (Death, Other)
  Sender: FDA-Public Use
  Company Number: JP-JNJFOC-20100111157

PATIENT
  Age: 77 Year
  Sex: Male

DRUGS (15)
  1. CRAVIT [Suspect]
     Indication: CYSTITIS
     Route: 048
  2. MEVALOTIN [Concomitant]
     Route: 065
  3. MAGNESIUM OXIDE [Concomitant]
     Route: 065
  4. TENORMIN [Concomitant]
     Route: 065
  5. DIOVAN [Concomitant]
     Route: 065
  6. WARFARIN SODIUM [Concomitant]
     Route: 065
  7. GASTER D [Concomitant]
     Route: 065
  8. AMARYL [Concomitant]
     Route: 065
  9. LAXOBERON [Concomitant]
     Route: 065
  10. SYMMETREL [Concomitant]
     Route: 065
  11. LANDSEN [Concomitant]
     Route: 065
  12. HARNAL [Concomitant]
     Route: 065
  13. EVIPROSTAT [Concomitant]
     Route: 065
  14. MOHRUS TAPE [Concomitant]
     Route: 065
  15. LAMISIL [Concomitant]
     Route: 065

REACTIONS (4)
  - CEREBRAL INFARCTION [None]
  - DYSPNOEA [None]
  - OLIGURIA [None]
  - PLEURAL EFFUSION [None]
